FAERS Safety Report 21712311 (Version 2)
Quarter: 2022Q4

REPORT INFORMATION
  Report Type: Spontaneous
  Country: DE (occurrence: DE)
  Receive Date: 20221212
  Receipt Date: 20221219
  Transmission Date: 20230113
  Serious: Yes (Hospitalization, Other)
  Sender: FDA-Public Use
  Company Number: DE-KRKA-DE2022K15167SPO

PATIENT

DRUGS (3)
  1. DICLOFENAC [Suspect]
     Active Substance: DICLOFENAC
     Indication: Drug abuse
     Dosage: 3 DF,  ONCE/SINGLE
     Route: 048
     Dates: start: 20221123, end: 20221123
  2. SILDENAFIL [Suspect]
     Active Substance: SILDENAFIL
     Indication: Drug abuse
     Dosage: 100 MG, ONCE/SINGLE
     Route: 048
     Dates: start: 20221123, end: 20221123
  3. TILIDINE [Suspect]
     Active Substance: TILIDINE
     Indication: Drug abuse
     Dosage: 3 DOSAGE FORM, ONCE/SINGLE
     Route: 048
     Dates: start: 20221123, end: 20221123

REACTIONS (4)
  - Drug abuse [Unknown]
  - Tremor [Unknown]
  - Hypersomnia [Unknown]
  - Fatigue [Unknown]

NARRATIVE: CASE EVENT DATE: 20221123
